FAERS Safety Report 4317478-4 (Version None)
Quarter: 2004Q1

REPORT INFORMATION
  Report Type: 
  Country: None (occurrence: None)
  Receive Date: 20040312
  Receipt Date: 20040303
  Transmission Date: 20041129
  Serious: No
  Sender: FDA-Public Use
  Company Number: 04H-124-0252205-00

PATIENT
  Sex: 0

DRUGS (2)
  1. THIOPENTAL SODIUM [Suspect]
     Indication: ANAESTHESIA
     Dosage: 4 MG/KG, NOT REPORTED, INJECTION
  2. SODIUM CHLORIDE INJ [Concomitant]

REACTIONS (2)
  - ANAESTHETIC COMPLICATION [None]
  - OXYGEN SATURATION DECREASED [None]
